FAERS Safety Report 16544064 (Version 1)
Quarter: 2019Q3

REPORT INFORMATION
  Report Type: Spontaneous
  Country: US (occurrence: US)
  Receive Date: 20190525
  Receipt Date: 20190525
  Transmission Date: 20191004
  Serious: Yes (Hospitalization)
  Sender: FDA-Public Use
  Company Number: None

PATIENT
  Age: 66 Year
  Sex: Female
  Weight: 114.54 kg

DRUGS (1)
  1. LENALIDOMIDE (CC-5013) [Suspect]
     Active Substance: LENALIDOMIDE
     Dates: end: 20190515

REACTIONS (11)
  - Hypotension [None]
  - Thrombocytopenia [None]
  - Urine output decreased [None]
  - Pneumonia [None]
  - Decreased appetite [None]
  - Chills [None]
  - Acute kidney injury [None]
  - Septic shock [None]
  - Neutropenia [None]
  - Hyperhidrosis [None]
  - Fatigue [None]

NARRATIVE: CASE EVENT DATE: 20190516
